FAERS Safety Report 9245306 (Version 1)
Quarter: 2013Q1

REPORT INFORMATION
  Report Type: Spontaneous
  Country: US (occurrence: None)
  Receive Date: 20121130
  Receipt Date: 20121130
  Transmission Date: 20140127
  Serious: Yes (Disabling, Other)
  Sender: FDA-Public Use
  Company Number: 1110USA04297

PATIENT
  Age: 78 Year
  Sex: Female
  Weight: 44.5 kg

DRUGS (4)
  1. FOSAMAX(ALENDRONATE SODIUM) TABLET [Suspect]
     Indication: OSTEOPOROSIS
     Route: 048
     Dates: start: 200308, end: 200609
  2. FOSAMAX(ALENDRONATE SODIUM) TABLET [Suspect]
     Indication: ANKLE FRACTURE
     Route: 048
     Dates: start: 200308, end: 200609
  3. FOSAMAX D (ALENDRONATE SODIUM (+) CHOLECALCIFEROL) TABLET [Suspect]
     Indication: OSTEOPOROSIS
     Route: 048
     Dates: start: 20060921, end: 201005
  4. FOSAMAX D (ALENDRONATE SODIUM (+) CHOLECALCIFEROL) TABLET [Suspect]
     Indication: ANKLE FRACTURE
     Route: 048
     Dates: start: 20060921, end: 201005

REACTIONS (17)
  - Osteonecrosis of jaw [None]
  - Dental caries [None]
  - Oral infection [None]
  - Periodontal disease [None]
  - Stomatitis [None]
  - Hypertension [None]
  - Osteoarthritis [None]
  - Osteolysis [None]
  - Gingival disorder [None]
  - Jaw fracture [None]
  - Gingival disorder [None]
  - Tooth disorder [None]
  - Blood cholesterol increased [None]
  - Impaired healing [None]
  - Abscess oral [None]
  - Oral surgery [None]
  - Osteomyelitis [None]
